FAERS Safety Report 5586246-8 (Version None)
Quarter: 2007Q4

REPORT INFORMATION
  Report Type: 
  Country: None (occurrence: None)
  Receive Date: 20071205
  Receipt Date: 20070416
  Transmission Date: 20080405
  Serious: Yes (Other)
  Sender: FDA-Public Use
  Company Number: HQWYE608217APR07

PATIENT
  Age: 72 Year
  Sex: Male

DRUGS (13)
  1. EFFEXOR XR [Suspect]
     Indication: DEPRESSION
     Dosage: 37.5 MG 1X PER 1 DAY, ORAL
     Route: 048
     Dates: start: 20070412, end: 20070412
  2. LOPRESSOR [Concomitant]
  3. ATIVAN [Concomitant]
  4. COUMADIN [Concomitant]
  5. COZAAR [Concomitant]
  6. PRAVACHOL [Concomitant]
  7. OXYCONTIN [Concomitant]
  8. LANTUS [Concomitant]
  9. LASIX [Concomitant]
  10. ACTOS [Concomitant]
  11. NEXIUM [Concomitant]
  12. SYNTHROID [Concomitant]
  13. INSULIN [Concomitant]

REACTIONS (1)
  - BURNING SENSATION [None]
